FAERS Safety Report 4546871-X (Version None)
Quarter: 2005Q1

REPORT INFORMATION
  Report Type: 
  Country: None (occurrence: None)
  Receive Date: 20050105
  Receipt Date: 20041227
  Transmission Date: 20050727
  Serious: Yes (Other)
  Sender: FDA-Public Use
  Company Number: 2004119580

PATIENT
  Age: 10 Year

DRUGS (1)
  1. SULPERAZON (SULBACTAM, CEFOPERAZONE) [Suspect]
     Indication: ILL-DEFINED DISORDER
     Dosage: 1.2 GRAM (1 D), INTRAVENOUS
     Route: 042
     Dates: end: 20041227

REACTIONS (5)
  - ANAPHYLACTIC SHOCK [None]
  - DYSPNOEA [None]
  - EXANTHEM [None]
  - FACE OEDEMA [None]
  - FLUSHING [None]
